FAERS Safety Report 8935684 (Version 1)
Quarter: 2012Q4

REPORT INFORMATION
  Report Type: 
  Country: US (occurrence: US)
  Receive Date: 20121130
  Receipt Date: 20121130
  Transmission Date: 20130627
  Serious: Yes (Other)
  Sender: FDA-Public Use
  Company Number: PHEH2012US023141

PATIENT
  Age: 68 Year
  Sex: Male

DRUGS (5)
  1. GLEEVEC [Suspect]
     Indication: MALIGNANT SOFT TISSUE NEOPLASM
     Dosage: 400 mg, QD
     Route: 048
     Dates: start: 20081111
  2. METOPROLOL [Concomitant]
  3. LISINOPRIL [Concomitant]
  4. SIMVASTATIN [Concomitant]
  5. LORTAB [Concomitant]

REACTIONS (1)
  - Mycobacterial infection [Recovering/Resolving]
